FAERS Safety Report 6728918-5 (Version None)
Quarter: 2010Q2

REPORT INFORMATION
  Report Type: 
  Country: None (occurrence: None)
  Receive Date: 20100517
  Receipt Date: 20100309
  Transmission Date: 20101027
  Serious: No
  Sender: FDA-Public Use
  Company Number: US-ABBOTT-10P-163-0631464-00

PATIENT
  Sex: Female
  Weight: 78.088 kg

DRUGS (4)
  1. SIMCOR [Suspect]
     Indication: DYSLIPIDAEMIA
     Dosage: 500/20 MG AT BED TIME
     Route: 048
     Dates: start: 20100302
  2. IBUPROFEN [Concomitant]
     Indication: FLUSHING
     Route: 048
  3. IBUPROFEN [Concomitant]
     Indication: PROPHYLAXIS
  4. LOVAZA [Concomitant]
     Indication: DRUG USE FOR UNKNOWN INDICATION
     Route: 048

REACTIONS (6)
  - ABDOMINAL DISCOMFORT [None]
  - ERYTHEMA [None]
  - FEELING HOT [None]
  - FLATULENCE [None]
  - FLUSHING [None]
  - PRURITUS [None]
